FAERS Safety Report 7019670-7 (Version None)
Quarter: 2010Q3

REPORT INFORMATION
  Report Type: 
  Country: None (occurrence: None)
  Receive Date: 20100928
  Receipt Date: 20100928
  Transmission Date: 20110219
  Serious: Yes (Disabling)
  Sender: FDA-Public Use
  Company Number: None

PATIENT
  Sex: Female

DRUGS (1)
  1. AMPHOTERICIN DOXYCHOLATE [Suspect]
     Dates: start: 20100515, end: 20100515

REACTIONS (3)
  - HYPOTENSION [None]
  - RESPIRATORY DISTRESS [None]
  - TACHYCARDIA [None]
